FAERS Safety Report 23130454 (Version 1)
Quarter: 2023Q4

REPORT INFORMATION
  Report Type: Spontaneous
  Country: US (occurrence: None)
  Receive Date: 20231030
  Receipt Date: 20231030
  Transmission Date: 20240110
  Serious: Yes (Hospitalization)
  Sender: FDA-Public Use
  Company Number: None

PATIENT
  Age: 68 Year
  Sex: Female
  Weight: 66.2 kg

DRUGS (3)
  1. LENVIMA [Suspect]
     Active Substance: LENVATINIB
     Indication: Endometrial cancer recurrent
     Dosage: FREQUENCY : DAILY;?
     Route: 048
     Dates: start: 20230801
  2. TAXOL [Suspect]
     Active Substance: PACLITAXEL
     Indication: Endometrial cancer recurrent
     Dosage: FREQUENCY : WEEKLY;?
     Route: 042
     Dates: start: 20230801, end: 20231010
  3. PEMBROLIZUMAB [Concomitant]
     Active Substance: PEMBROLIZUMAB

REACTIONS (10)
  - Diarrhoea [None]
  - Therapy change [None]
  - Abdominal pain [None]
  - Vomiting [None]
  - Cough [None]
  - Urinary tract infection [None]
  - SARS-CoV-2 test positive [None]
  - Rales [None]
  - Hypoxia [None]
  - Infection [None]

NARRATIVE: CASE EVENT DATE: 20231027
